FAERS Safety Report 6866740-X (Version None)
Quarter: 2010Q3

REPORT INFORMATION
  Report Type: 
  Country: None (occurrence: None)
  Receive Date: 20100722
  Receipt Date: 20100709
  Transmission Date: 20110219
  Serious: Yes (Other)
  Sender: FDA-Public Use
  Company Number: PHHY2010JP43075

PATIENT
  Sex: Female

DRUGS (2)
  1. ZOMETA [Suspect]
     Indication: METASTASES TO BONE
     Dosage: 4 MG PER MONTH FOR 19 MONTHS
  2. OTHER CHEMOTHERAPEUTICS [Concomitant]
     Indication: METASTASES TO BONE

REACTIONS (10)
  - ABSCESS JAW [None]
  - BONE DISORDER [None]
  - BONE SWELLING [None]
  - FEMORAL NECK FRACTURE [None]
  - GINGIVAL PAIN [None]
  - INCISIONAL DRAINAGE [None]
  - OSTEOMYELITIS [None]
  - OSTEONECROSIS OF JAW [None]
  - OSTEOSCLEROSIS [None]
  - PURULENT DISCHARGE [None]
